FAERS Safety Report 21751423 (Version 2)
Quarter: 2023Q1

REPORT INFORMATION
  Report Type: Spontaneous
  Country: US (occurrence: US)
  Receive Date: 20221220
  Receipt Date: 20230113
  Transmission Date: 20230417
  Serious: Yes (Other)
  Sender: FDA-Public Use
  Company Number: US-009507513-2212USA006937

PATIENT
  Sex: Female
  Weight: 102.95 kg

DRUGS (7)
  1. KEYTRUDA [Suspect]
     Active Substance: PEMBROLIZUMAB
     Indication: Lung neoplasm malignant
     Dosage: 200 MILLIGRAM
     Dates: start: 20210826
  2. LENVATINIB MESYLATE [Suspect]
     Active Substance: LENVATINIB MESYLATE
     Indication: Lung neoplasm malignant
     Dosage: 10 MILLIGRAM, QD
     Route: 048
     Dates: start: 20210826
  3. LISINOPRIL [Concomitant]
     Active Substance: LISINOPRIL
     Dosage: 5 MILLIGRAM
  4. CHOLECALCIFEROL [Concomitant]
     Active Substance: CHOLECALCIFEROL
  5. CALCIUM [Concomitant]
     Active Substance: CALCIUM
  6. FISH OIL [Concomitant]
     Active Substance: FISH OIL
  7. ALOE VERA LEAF [Concomitant]
     Active Substance: ALOE VERA LEAF

REACTIONS (2)
  - Malignant neoplasm progression [Unknown]
  - Drug ineffective [Unknown]
